FAERS Safety Report 8248275-5 (Version None)
Quarter: 2012Q1

REPORT INFORMATION
  Report Type: 
  Country: None (occurrence: None)
  Receive Date: 20120330
  Receipt Date: 20120320
  Transmission Date: 20120608
  Serious: Yes (Hospitalization)
  Sender: FDA-Public Use
  Company Number: DE-BRISTOL-MYERS SQUIBB COMPANY-16473639

PATIENT
  Age: 64 Year
  Sex: Male
  Weight: 78 kg

DRUGS (11)
  1. ONGLYZA [Suspect]
     Indication: DIABETES MELLITUS
     Route: 048
     Dates: start: 20110101, end: 20110501
  2. PRAVASTATIN SODIUM [Concomitant]
     Dosage: AT NIGHT
  3. LISIHEXAL [Concomitant]
     Dosage: MORNING + NIGHT
  4. NOVORAPID [Concomitant]
     Route: 058
  5. LANTUS [Concomitant]
     Route: 058
  6. ASPIRIN [Concomitant]
     Dosage: NOON. BREAK SINCE 20JAN2012
  7. OMEPRAZOLE [Concomitant]
     Dosage: NOON. ALSO 40MG
  8. BISOPROLOL FUMARATE [Concomitant]
     Indication: HYPERTENSION
     Route: 048
  9. VALSARTAN [Concomitant]
     Indication: HYPERTENSION
     Route: 048
  10. METFORMIN HYDROCHLORIDE [Concomitant]
     Indication: DIABETES MELLITUS
     Dosage: MORNING + NIGHT BREAK SINCE 20JAN2012
     Route: 048
  11. BISOHEXAL PLUS [Concomitant]
     Dosage: 1 DF= 5/12.5MG. AT NIGHT

REACTIONS (3)
  - PANCREATITIS CHRONIC [None]
  - CHOLECYSTITIS [None]
  - CHOLANGITIS [None]
